FAERS Safety Report 5957698-6 (Version None)
Quarter: 2008Q4

REPORT INFORMATION
  Report Type: 
  Country: None (occurrence: None)
  Receive Date: 20081119
  Receipt Date: 20081110
  Transmission Date: 20090506
  Serious: Yes (Other)
  Sender: FDA-Public Use
  Company Number: US-ALLERGAN-0814324US

PATIENT
  Sex: Female

DRUGS (6)
  1. PRED FORTE [Suspect]
     Indication: POSTOPERATIVE CARE
     Dosage: UNK, UNK
     Route: 047
     Dates: start: 20040101
  2. MURO-128 [Concomitant]
     Indication: CORNEAL OEDEMA
     Route: 047
     Dates: start: 20080501
  3. OPTIVE [Concomitant]
     Indication: DRY EYE
     Dosage: UNK, QHS
     Route: 047
  4. SYSTANE [Concomitant]
     Indication: DRY EYE
     Dosage: UNK, QHS
     Route: 047
  5. ACTONEL [Concomitant]
     Indication: OSTEOPOROSIS
  6. CALCIUM W/MAGNESIUM/VITAMIN D [Concomitant]
     Indication: DENTAL CARE

REACTIONS (5)
  - BLOOD AMYLASE INCREASED [None]
  - DYSGEUSIA [None]
  - EYE IRRITATION [None]
  - LIPASE INCREASED [None]
  - TRANSPLANT FAILURE [None]
